FAERS Safety Report 10209354 (Version 1)
Quarter: 2014Q2

REPORT INFORMATION
  Report Type: Other
  Country: FR (occurrence: FR)
  Receive Date: 20140531
  Receipt Date: 20140531
  Transmission Date: 20141212
  Serious: Yes (Hospitalization)
  Sender: FDA-Public Use
  Company Number: FR-LUPIN PHARMACEUTICALS INC.-2014-00362

PATIENT
  Age: 23 Year
  Sex: Female

DRUGS (1)
  1. CEFOTAXIME [Suspect]
     Indication: PRODUCT USED FOR UNKNOWN INDICATION
     Route: 065

REACTIONS (1)
  - Acute generalised exanthematous pustulosis [Recovered/Resolved]
